FAERS Safety Report 4986991-9 (Version None)
Quarter: 2006Q2

REPORT INFORMATION
  Report Type: 
  Country: None (occurrence: None)
  Receive Date: 20060501
  Receipt Date: 20060419
  Transmission Date: 20061013
  Serious: Yes (Other)
  Sender: FDA-Public Use
  Company Number: PHNR2006AU00700

PATIENT
  Age: 28 Year
  Sex: Male

DRUGS (2)
  1. RITALIN [Suspect]
     Dosage: 10 MG
  2. RITALIN LA [Suspect]
     Indication: ANXIETY
     Dosage: 20 MG, QD

REACTIONS (1)
  - INTRAOCULAR PRESSURE INCREASED [None]
